FAERS Safety Report 5580698-5 (Version None)
Quarter: 2008Q1

REPORT INFORMATION
  Report Type: 
  Country: None (occurrence: None)
  Receive Date: 20080103
  Receipt Date: 20071225
  Transmission Date: 20080703
  Serious: Yes (Other)
  Sender: FDA-Public Use
  Company Number: FR-PFIZER INC-2007107640

PATIENT
  Age: 60 Year
  Sex: Female

DRUGS (7)
  1. CEFPODOXIME PROXETIL [Suspect]
     Indication: SINUSITIS
     Route: 048
     Dates: start: 20071124, end: 20071201
  2. ARAVA [Suspect]
     Indication: RHEUMATOID ARTHRITIS
     Route: 048
     Dates: start: 20061201, end: 20070701
  3. ARAVA [Suspect]
     Route: 048
     Dates: start: 20070701, end: 20071214
  4. INEXIUM [Suspect]
     Indication: PROPHYLAXIS
     Route: 048
  5. CORTANCYL [Concomitant]
     Indication: RHEUMATOID ARTHRITIS
     Dosage: DAILY DOSE:6MG
     Route: 048
  6. ACTONEL [Concomitant]
     Indication: OSTEOPOROSIS
     Route: 048
  7. LIPANTHYL [Concomitant]
     Indication: HYPERTRIGLYCERIDAEMIA
     Route: 048

REACTIONS (5)
  - CHEILITIS [None]
  - PRURITUS [None]
  - RASH ERYTHEMATOUS [None]
  - STEVENS-JOHNSON SYNDROME [None]
  - TONGUE ULCERATION [None]
